FAERS Safety Report 5573024-9 (Version None)
Quarter: 2007Q4

REPORT INFORMATION
  Report Type: 
  Country: None (occurrence: None)
  Receive Date: 20071214
  Receipt Date: 20071211
  Transmission Date: 20080405
  Serious: Yes (Death, Hospitalization, Disabling)
  Sender: FDA-Public Use
  Company Number: THYM-11636

PATIENT
  Age: 70 Year
  Sex: Male

DRUGS (12)
  1. THYMOGLOBULIN [Suspect]
     Indication: APLASTIC ANAEMIA
     Dosage: 2.5 MG/KG QD IV
     Route: 042
     Dates: start: 20070213
  2. THYMOGLOBULIN [Suspect]
  3. THYMOGLOBULIN [Suspect]
  4. THYMOGLOBULIN [Suspect]
  5. THYMOGLOBULIN [Suspect]
     Indication: APLASTIC ANAEMIA
     Dosage: 3.5 MG/KG QD IV
     Route: 042
     Dates: start: 20070725, end: 20070729
  6. THYMOGLOBULIN [Suspect]
  7. THYMOGLOBULIN [Suspect]
  8. THYMOGLOBULIN [Suspect]
  9. CYCLOSPORINE [Concomitant]
  10. OMEPRAZOLE [Concomitant]
  11. VORICONAZOLE [Concomitant]
  12. NEUPOGEN [Concomitant]

REACTIONS (6)
  - ENCEPHALOPATHY [None]
  - FACIAL PALSY [None]
  - NERVE ROOT LESION [None]
  - NO THERAPEUTIC RESPONSE [None]
  - PARALYSIS [None]
  - PYREXIA [None]
